FAERS Safety Report 15243514 (Version 2)
Quarter: 2018Q3

REPORT INFORMATION
  Report Type: Report from Study
  Country: JP (occurrence: JP)
  Receive Date: 20180806
  Receipt Date: 20180820
  Transmission Date: 20181010
  Serious: Yes (Death, Life-Threatening, Hospitalization, Other)
  Sender: FDA-Public Use
  Company Number: JP-SA-2017SA010538

PATIENT
  Age: 75 Year
  Sex: Female
  Weight: 58.3 kg

DRUGS (24)
  1. ALEMTUZUMAB [Suspect]
     Active Substance: ALEMTUZUMAB
     Indication: CHRONIC LYMPHOCYTIC LEUKAEMIA
     Dosage: 10 MG, QD
     Route: 041
     Dates: start: 20170117, end: 20170117
  2. ALEMTUZUMAB [Suspect]
     Active Substance: ALEMTUZUMAB
     Dosage: 3 MG, TIW
     Route: 041
     Dates: start: 20170407, end: 20170412
  3. FEBURIC [Concomitant]
     Active Substance: FEBUXOSTAT
     Indication: PRODUCT USED FOR UNKNOWN INDICATION
     Dosage: 20 MG, QD
     Route: 048
     Dates: start: 20170110
  4. VIRUHEXAL [Concomitant]
     Active Substance: ACYCLOVIR
     Indication: INFECTION PROPHYLAXIS
     Dosage: 200 MG, QD
     Route: 048
     Dates: start: 20170110
  5. BAKTAR [Concomitant]
     Active Substance: SULFAMETHOXAZOLE\TRIMETHOPRIM
     Indication: INFECTION PROPHYLAXIS
     Dosage: 2 DF, UNK
     Route: 048
     Dates: start: 20170113
  6. CEFEPIME HYDROCHLORIDE. [Concomitant]
     Active Substance: CEFEPIME HYDROCHLORIDE
     Indication: INFECTION PROPHYLAXIS
     Dosage: 2 G, BID
     Route: 042
     Dates: start: 20170111, end: 20170113
  7. ALEMTUZUMAB [Suspect]
     Active Substance: ALEMTUZUMAB
     Dosage: 3 MG, TIW
     Route: 041
     Dates: start: 20170222, end: 20170402
  8. TULOBUTEROL [Concomitant]
     Active Substance: TULOBUTEROL
     Indication: PROPHYLAXIS
     Dosage: 2 MG, QD
     Route: 003
     Dates: start: 20170110
  9. FLUCONAZOLE. [Concomitant]
     Active Substance: FLUCONAZOLE
     Indication: INFECTION PROPHYLAXIS
     Dosage: 100 MG, QD
     Route: 048
     Dates: start: 20170110
  10. ZITHROMAC [Concomitant]
     Active Substance: AZITHROMYCIN DIHYDRATE
     Indication: INFECTION PROPHYLAXIS
     Dosage: 1200 MG, QD
     Route: 048
     Dates: start: 20170119
  11. ALEMTUZUMAB [Suspect]
     Active Substance: ALEMTUZUMAB
     Dosage: 3 MG, QD
     Route: 041
     Dates: start: 20170124, end: 20170124
  12. ROXATIDINE ACETATE HYDROCHLORIDE [Concomitant]
     Active Substance: ROXATIDINE ACETATE HYDROCHLORIDE
     Indication: PRODUCT USED FOR UNKNOWN INDICATION
     Dosage: 75 MG, BID
     Route: 048
     Dates: start: 20170110
  13. DIPHENHYDRAMINE HYDROCHLORIDE. [Concomitant]
     Active Substance: DIPHENHYDRAMINE HYDROCHLORIDE
     Indication: PROPHYLAXIS
     Dosage: 50 MG, QD, PRN
     Route: 048
     Dates: start: 20170116
  14. FAMVIR [FAMCICLOVIR] [Concomitant]
     Indication: PRODUCT USED FOR UNKNOWN INDICATION
     Dosage: 250 MG, QD
     Route: 048
     Dates: start: 20170113
  15. ALEMTUZUMAB [Suspect]
     Active Substance: ALEMTUZUMAB
     Dosage: 3 MG, QD
     Route: 041
     Dates: start: 20170116, end: 20170116
  16. DEXAMETHASONE SODIUM PHOSPHATE. [Suspect]
     Active Substance: DEXAMETHASONE SODIUM PHOSPHATE
     Indication: PROPHYLAXIS
     Dosage: 19.8 MG, QD
     Route: 042
     Dates: start: 20170121, end: 20170128
  17. DEXAMETHASONE SODIUM PHOSPHATE. [Suspect]
     Active Substance: DEXAMETHASONE SODIUM PHOSPHATE
     Dosage: 6.6 MG, QD
     Route: 042
     Dates: start: 20170129
  18. CEFEPIME HYDROCHLORIDE. [Suspect]
     Active Substance: CEFEPIME HYDROCHLORIDE
     Indication: PYREXIA
     Dosage: UNK
     Route: 065
     Dates: start: 201704
  19. ALEMTUZUMAB [Suspect]
     Active Substance: ALEMTUZUMAB
     Dosage: 10 MG, QD
     Route: 041
     Dates: start: 20170125, end: 20170127
  20. DEXAMETHASONE SODIUM PHOSPHATE. [Suspect]
     Active Substance: DEXAMETHASONE SODIUM PHOSPHATE
     Dosage: 19.8 MG, QD
     Route: 042
     Dates: start: 20170111, end: 20170117
  21. VALIXA [Concomitant]
     Active Substance: VALGANCICLOVIR
     Indication: INFECTION PROPHYLAXIS
     Dosage: 900 MG, BID
     Dates: start: 20170126
  22. COCARL [Concomitant]
     Active Substance: ACETAMINOPHEN
     Indication: PROPHYLAXIS
     Dosage: 600 MG, QD, PRN
     Route: 048
     Dates: start: 20170116
  23. DEXAMETHASONE SODIUM PHOSPHATE. [Suspect]
     Active Substance: DEXAMETHASONE SODIUM PHOSPHATE
     Indication: TUMOUR LYSIS SYNDROME
     Dosage: 33 MG, QD
     Route: 042
     Dates: start: 20170118, end: 20170120
  24. TEPRENONE [Concomitant]
     Active Substance: TEPRENONE
     Indication: PRODUCT USED FOR UNKNOWN INDICATION
     Dosage: 0.5 G, TID
     Route: 048
     Dates: start: 20170110

REACTIONS (11)
  - Cytomegalovirus viraemia [Unknown]
  - Rash [Unknown]
  - Hyperphosphatasaemia [Recovered/Resolved]
  - Pneumonia fungal [Unknown]
  - Cardiac failure [Recovered/Resolved]
  - Pyrexia [Recovered/Resolved]
  - Tumour lysis syndrome [Recovered/Resolved]
  - Gamma-glutamyltransferase increased [Recovering/Resolving]
  - Pulmonary oedema [Recovered/Resolved]
  - Aspartate aminotransferase increased [Recovered/Resolved]
  - Alanine aminotransferase increased [Recovered/Resolved]

NARRATIVE: CASE EVENT DATE: 20170118
